FAERS Safety Report 7452752-4 (Version None)
Quarter: 2011Q2

REPORT INFORMATION
  Report Type: 
  Country: None (occurrence: None)
  Receive Date: 20110502
  Receipt Date: 20101207
  Transmission Date: 20111010
  Serious: No
  Sender: FDA-Public Use
  Company Number: US-ASTRAZENECA-2010SE53742

PATIENT
  Sex: Male

DRUGS (6)
  1. OMEPRAZOLE [Suspect]
     Indication: GASTROOESOPHAGEAL REFLUX DISEASE
     Route: 048
  2. NEXIUM [Suspect]
     Indication: GASTROOESOPHAGEAL REFLUX DISEASE
     Route: 048
     Dates: start: 20101007, end: 20101020
  3. KETOPROFEN [Concomitant]
     Indication: ARTHRITIS
  4. BISOPROLOL FUMARATE [Concomitant]
  5. NIACIN [Concomitant]
  6. LOSARTAN POTASSIUM [Concomitant]
     Indication: HYPERTENSION

REACTIONS (4)
  - DRUG HYPERSENSITIVITY [None]
  - RASH GENERALISED [None]
  - URTICARIA [None]
  - GASTRITIS EROSIVE [None]
